FAERS Safety Report 11024771 (Version 2)
Quarter: 2015Q2

REPORT INFORMATION
  Report Type: Report from Study
  Country: US (occurrence: None)
  Receive Date: 20150410
  Receipt Date: 20150616
  Transmission Date: 20150821
  Serious: Yes (Hospitalization)
  Sender: FDA-Public Use
  Company Number: 2015-11018

PATIENT
  Age: 72 Year
  Sex: Male
  Weight: 92.5 kg

DRUGS (4)
  1. AMLODIPINE [Concomitant]
     Active Substance: AMLODIPINE BESYLATE
  2. LISINOPRIL. [Concomitant]
     Active Substance: LISINOPRIL
  3. AFLIBERCEPT [Suspect]
     Active Substance: AFLIBERCEPT
     Indication: POLYPOIDAL CHOROIDAL VASCULOPATHY
     Dosage: 2 MG MILLIGRAM(S), UNK, INTRAOCULAR
     Route: 031
     Dates: start: 20140429
  4. AFLIBERCEPT [Suspect]
     Active Substance: AFLIBERCEPT
     Indication: CHOROIDAL NEOVASCULARISATION
     Dosage: 2 MG MILLIGRAM(S), UNK, INTRAOCULAR
     Route: 031
     Dates: start: 20140429

REACTIONS (1)
  - Labile blood pressure [None]

NARRATIVE: CASE EVENT DATE: 20140526
